FAERS Safety Report 5680195-2 (Version None)
Quarter: 2008Q1

REPORT INFORMATION
  Report Type: 
  Country: None (occurrence: None)
  Receive Date: 20080326
  Receipt Date: 20080314
  Transmission Date: 20080703
  Serious: Yes (Other)
  Sender: FDA-Public Use
  Company Number: PHBS2008NL03316

PATIENT
  Age: 68 Year
  Sex: Male

DRUGS (3)
  1. EXELON [Suspect]
     Indication: DEMENTIA
     Dosage: 9.5 MG/DAY
     Route: 062
     Dates: start: 20080126, end: 20080128
  2. ACETOSAL [Concomitant]
     Indication: CEREBROVASCULAR ACCIDENT
     Dosage: 80 MG/DAY
     Route: 048
     Dates: start: 20000801
  3. SINEMET [Concomitant]
     Indication: DEMENTIA
     Dosage: 125 MG, TID
     Route: 048
     Dates: start: 20010101

REACTIONS (3)
  - CONFUSIONAL STATE [None]
  - HALLUCINATION [None]
  - PSYCHOTIC DISORDER [None]
